FAERS Safety Report 15113492 (Version 1)
Quarter: 2018Q3

REPORT INFORMATION
  Report Type: Report from Study
  Country: IT (occurrence: IT)
  Receive Date: 20180706
  Receipt Date: 20180706
  Transmission Date: 20181010
  Serious: Yes (Hospitalization)
  Sender: FDA-Public Use
  Company Number: IT-TEVA-2018-IT-921535

PATIENT
  Age: 54 Year
  Sex: Male
  Weight: 83 kg

DRUGS (8)
  1. ADENURIC [Concomitant]
     Active Substance: FEBUXOSTAT
     Route: 065
  2. BACTRIM [Concomitant]
     Active Substance: SULFAMETHOXAZOLE\TRIMETHOPRIM
     Route: 048
  3. FENTANYL. [Concomitant]
     Active Substance: FENTANYL
     Dosage: 25 MICROGRAM DAILY;
     Route: 003
  4. OMEPRAZOLE. [Concomitant]
     Active Substance: OMEPRAZOLE
     Dosage: 20 MILLIGRAM DAILY;
     Route: 048
  5. DELTACORTENE [Concomitant]
     Active Substance: PREDNISONE
     Route: 065
  6. ACICLOVIR [Concomitant]
     Active Substance: ACYCLOVIR
     Dosage: 800 MILLIGRAM DAILY;
     Route: 048
  7. METOTRESSATO TEVA 100 MG/ML SOLUZIONE INIETTABILE [Suspect]
     Active Substance: METHOTREXATE SODIUM
     Indication: B-CELL LYMPHOMA
     Route: 042
     Dates: start: 20180424
  8. ABSTRAL [Concomitant]
     Active Substance: FENTANYL CITRATE
     Route: 065

REACTIONS (7)
  - Alanine aminotransferase increased [None]
  - Stomatitis [Recovering/Resolving]
  - Hepatic enzyme increased [Recovering/Resolving]
  - Febrile neutropenia [Recovering/Resolving]
  - Aplastic anaemia [Recovering/Resolving]
  - Mucosal inflammation [Recovering/Resolving]
  - Gamma-glutamyltransferase increased [None]

NARRATIVE: CASE EVENT DATE: 20180430
